FAERS Safety Report 25282578 (Version 1)
Quarter: 2025Q2

REPORT INFORMATION
  Report Type: Spontaneous
  Country: US (occurrence: None)
  Receive Date: 20250507
  Receipt Date: 20250507
  Transmission Date: 20250716
  Serious: Yes (Hospitalization, Other)
  Sender: FDA-CTU
  Company Number: None

PATIENT
  Age: 76 Year
  Sex: Male

DRUGS (1)
  1. BOSENTAN [Suspect]
     Active Substance: BOSENTAN
     Indication: Pulmonary arterial hypertension
     Dosage: 125MG BID ORAL ??THERAPY  STOP:  ON HOLD?
     Dates: start: 20210903

REACTIONS (6)
  - Dyspnoea [None]
  - Peripheral swelling [None]
  - Hypoxia [None]
  - Respiratory failure [None]
  - Cardiac failure [None]
  - Liver function test abnormal [None]

NARRATIVE: CASE EVENT DATE: 20250503
